FAERS Safety Report 4431691-7 (Version None)
Quarter: 2004Q3

REPORT INFORMATION
  Report Type: 
  Country: None (occurrence: None)
  Receive Date: 20040825
  Receipt Date: 20040820
  Transmission Date: 20050211
  Serious: Yes (Life-Threatening, Hospitalization)
  Sender: FDA-Public Use
  Company Number: CH-JNJFOC-20040806631

PATIENT
  Age: 9 Year
  Sex: Male
  Weight: 26 kg

DRUGS (3)
  1. REMICADE [Suspect]
     Indication: CROHN'S DISEASE
     Route: 042
  2. TAVEGYL [Concomitant]
  3. SOLU-MEDROL [Concomitant]

REACTIONS (6)
  - ARTHRALGIA [None]
  - BRADYCARDIA [None]
  - HYPOTENSION [None]
  - OXYGEN SATURATION DECREASED [None]
  - PYREXIA [None]
  - RASH [None]
